FAERS Safety Report 8699841 (Version 2)
Quarter: 2012Q4

REPORT INFORMATION
  Report Type: 
  Country: US (occurrence: US)
  Receive Date: 20120802
  Receipt Date: 20121019
  Transmission Date: 20130627
  Serious: No
  Sender: FDA-Public Use
  Company Number: US-ASTRAZENECA-2012SE51215

PATIENT
  Age: 28 Year
  Sex: Male
  Weight: 81.6 kg

DRUGS (7)
  1. SEROQUEL [Suspect]
     Indication: SCHIZOAFFECTIVE DISORDER
     Route: 048
  2. SEROQUEL [Suspect]
     Indication: INSOMNIA
     Route: 048
  3. SEROQUEL [Suspect]
     Indication: SCHIZOAFFECTIVE DISORDER
     Route: 048
     Dates: start: 2012
  4. SEROQUEL [Suspect]
     Indication: INSOMNIA
     Route: 048
     Dates: start: 2012
  5. KLONOPIN [Suspect]
     Indication: ANXIETY
     Route: 065
  6. KLONOPIN [Suspect]
     Indication: SLEEP DISORDER
     Route: 065
  7. LUNESTA [Suspect]
     Indication: SLEEP DISORDER
     Route: 065

REACTIONS (7)
  - Muscular weakness [Not Recovered/Not Resolved]
  - Insomnia [Unknown]
  - Sensation of heaviness [Unknown]
  - Asthenia [Unknown]
  - Adverse event [Unknown]
  - Emotional disorder [Unknown]
  - Drug effect incomplete [Unknown]
